FAERS Safety Report 9409144 (Version 2)
Quarter: 2013Q4

REPORT INFORMATION
  Report Type: Spontaneous
  Country: FR (occurrence: None)
  Receive Date: 20130408
  Receipt Date: 20131213
  Transmission Date: 20140711
  Serious: Yes (Hospitalization)
  Sender: FDA-Public Use
  Company Number: 2013FR0090

PATIENT
  Age: 37 Year
  Sex: Female

DRUGS (2)
  1. KINERET (ANAKINRA), NOT AVAILABLE [Suspect]
     Indication: FAMILIAL MEDITERRANEAN FEVER
     Dosage: 100 MG (100 MG, 1 IN 1 D)
     Route: 058
     Dates: start: 20120418, end: 20120428
  2. KINERET (ANAKINRA), NOT AVAILABLE [Suspect]
     Indication: FAMILIAL MEDITERRANEAN FEVER
     Dosage: 100 MG (100 MG, 1 IN 1 D)
     Route: 058
     Dates: start: 20120418, end: 20120428

REACTIONS (3)
  - Injection site inflammation [None]
  - Induration [None]
  - Chills [None]
